FAERS Safety Report 12542738 (Version 4)
Quarter: 2016Q4

REPORT INFORMATION
  Report Type: Report from Study
  Country: JP (occurrence: JP)
  Receive Date: 20160709
  Receipt Date: 20161224
  Transmission Date: 20170207
  Serious: Yes (Other)
  Sender: FDA-Public Use
  Company Number: JP-AMGEN-JPNCT2015133335

PATIENT
  Age: 51 Year
  Sex: Female
  Weight: 58.9 kg

DRUGS (5)
  1. PANITUMUMAB [Suspect]
     Active Substance: PANITUMUMAB
     Indication: COLON CANCER
     Dosage: 343.8 MG, Q2WK
     Route: 041
     Dates: start: 20151001, end: 20151015
  2. 5-FU                               /00098801/ [Suspect]
     Active Substance: FLUOROURACIL
     Indication: RECTAL CANCER
     Dosage: 650.8 MG, Q2WK
     Route: 040
     Dates: start: 20151001, end: 20151015
  3. ELPLAT [Suspect]
     Active Substance: OXALIPLATIN
     Indication: RECTAL CANCER
     Dosage: 138.3 MG, Q2WEEKS
     Route: 041
     Dates: start: 20151001, end: 20151015
  4. CALCIUM LEVOFOLINATE [Concomitant]
     Active Substance: LEVOLEUCOVORIN CALCIUM
     Indication: RECTAL CANCER
     Dosage: 325.4 MG, Q2WEEKS
     Route: 041
     Dates: start: 20151001, end: 20151015
  5. 5-FU                               /00098801/ [Suspect]
     Active Substance: FLUOROURACIL
     Dosage: 3904.8 MG, Q2WEEKS
     Route: 041
     Dates: start: 20151001, end: 20151015

REACTIONS (2)
  - Neutropenia [Not Recovered/Not Resolved]
  - Urticaria [Recovered/Resolved]

NARRATIVE: CASE EVENT DATE: 20151105
